FAERS Safety Report 21794360 (Version 1)
Quarter: 2022Q4

REPORT INFORMATION
  Report Type: Spontaneous
  Country: JP (occurrence: JP)
  Receive Date: 20221229
  Receipt Date: 20221229
  Transmission Date: 20230113
  Serious: Yes (Other)
  Sender: FDA-Public Use
  Company Number: JP-AMGEN-JPNSP2022221843

PATIENT

DRUGS (2)
  1. LUMAKRAS [Suspect]
     Active Substance: SOTORASIB
     Indication: Metastatic neoplasm
     Dosage: 960 MILLIGRAM
     Route: 048
  2. LUMAKRAS [Suspect]
     Active Substance: SOTORASIB
     Indication: Off label use

REACTIONS (2)
  - Metastatic neoplasm [Unknown]
  - Off label use [Unknown]
